FAERS Safety Report 18221247 (Version 1)
Quarter: 2020Q3

REPORT INFORMATION
  Report Type: Spontaneous
  Country: US (occurrence: US)
  Receive Date: 20200831
  Receipt Date: 20200831
  Transmission Date: 20201103
  Serious: No
  Sender: FDA-Public Use
  Company Number: None

PATIENT
  Age: 87 Year
  Sex: Male
  Weight: 78.47 kg

DRUGS (1)
  1. IOHEXOL (IOHEXOL 647.1MG/ML INJ) [Suspect]
     Active Substance: IOHEXOL
     Indication: SCAN WITH CONTRAST
     Route: 042
     Dates: start: 20200420, end: 20200420

REACTIONS (3)
  - Circumoral oedema [None]
  - Swelling face [None]
  - Vomiting [None]

NARRATIVE: CASE EVENT DATE: 20200420
